FAERS Safety Report 24070417 (Version 1)
Quarter: 2024Q3

REPORT INFORMATION
  Report Type: Spontaneous
  Country: FR (occurrence: FR)
  Receive Date: 20240710
  Receipt Date: 20240710
  Transmission Date: 20241016
  Serious: No
  Sender: ROCHE
  Company Number: FR-ROCHE-3414942

PATIENT
  Age: 77 Year
  Sex: Female

DRUGS (1)
  1. ALECENSA [Suspect]
     Active Substance: ALECTINIB HYDROCHLORIDE
     Indication: Neoplasm malignant
     Dosage: 150 MG, 3 CAPSULES IN THE MORNING AND 3 IN THE EVENING.
     Route: 065

REACTIONS (3)
  - Intentional product use issue [Unknown]
  - Accidental overdose [Unknown]
  - No adverse event [Unknown]

NARRATIVE: CASE EVENT DATE: 20230827
